FAERS Safety Report 4365932-1 (Version None)
Quarter: 2004Q2

REPORT INFORMATION
  Report Type: 
  Country: None (occurrence: None)
  Receive Date: 20040520
  Receipt Date: 20040506
  Transmission Date: 20050107
  Serious: Yes (Other)
  Sender: FDA-Public Use
  Company Number: BR-JNJFOC-20040501682

PATIENT
  Age: 21 Year
  Sex: Female
  Weight: 38 kg

DRUGS (2)
  1. MICRONOR [Suspect]
     Indication: CONTRACEPTION
     Dosage: 1 DOSE(S), 1 IN 1 DAY, ORAL
     Route: 048
     Dates: start: 20030805
  2. HYOSCINE HBR HYT [Concomitant]

REACTIONS (5)
  - ABORTION INDUCED [None]
  - DRUG EXPOSURE DURING PREGNANCY [None]
  - PREGNANCY ON ORAL CONTRACEPTIVE [None]
  - SELF-MEDICATION [None]
  - VAGINAL HAEMORRHAGE [None]
